FAERS Safety Report 13278865 (Version 1)
Quarter: 2017Q1

REPORT INFORMATION
  Report Type: Spontaneous
  Country: US (occurrence: US)
  Receive Date: 20170228
  Receipt Date: 20170228
  Transmission Date: 20170428
  Serious: Yes (Other)
  Sender: FDA-Public Use
  Company Number: US-CELGENEUS-USA-2017028458

PATIENT
  Age: 80 Year
  Sex: Male

DRUGS (1)
  1. REVLIMID [Suspect]
     Active Substance: LENALIDOMIDE
     Indication: PANCYTOPENIA
     Dosage: 10 MILLIGRAM
     Route: 048
     Dates: start: 201512

REACTIONS (1)
  - Cerebrovascular accident [Unknown]

NARRATIVE: CASE EVENT DATE: 20170222
